FAERS Safety Report 7416967-3 (Version None)
Quarter: 2011Q2

REPORT INFORMATION
  Report Type: 
  Country: None (occurrence: None)
  Receive Date: 20110415
  Receipt Date: 20110407
  Transmission Date: 20111010
  Serious: Yes (Other)
  Sender: FDA-Public Use
  Company Number: CA-ASTELLAS-2011US001460

PATIENT
  Age: 62 Year
  Sex: Male

DRUGS (8)
  1. FUROSEMIDE [Concomitant]
     Indication: OEDEMA
     Dosage: 40 MG, UID/QD
     Route: 048
     Dates: start: 20100401
  2. RAPAMUNE [Suspect]
     Indication: LIVER TRANSPLANT
     Dosage: 5 MG, UID/QD
     Route: 048
     Dates: start: 20070106, end: 20110127
  3. CITALOPRAM [Concomitant]
     Indication: OEDEMA
     Dosage: 10 MG, UID/QD
     Route: 048
     Dates: start: 20100401
  4. SPIRONOLACTONE [Concomitant]
     Indication: OEDEMA
     Dosage: 50 MG, UID/QD
     Route: 048
     Dates: start: 20100401
  5. PROGRAF [Suspect]
     Indication: LIVER TRANSPLANT
     Dosage: UNK
     Route: 065
  6. ALENDRONATE SODIUM [Concomitant]
     Indication: OSTEOPOROSIS
     Dosage: 70 MG, WEEKLY
     Route: 048
     Dates: start: 20070701
  7. LEVOTHYROXINE [Concomitant]
     Indication: HYPOTHYROIDISM
     Dosage: 75 MG, UID/QD
     Route: 048
  8. PANTOPRAZOLE [Concomitant]
     Indication: GASTROOESOPHAGEAL REFLUX DISEASE
     Dosage: 40 MG, UID/QD
     Route: 048
     Dates: start: 20091001

REACTIONS (8)
  - INTERSTITIAL LUNG DISEASE [None]
  - RESPIRATORY DISORDER [None]
  - PULMONARY FUNCTION TEST DECREASED [None]
  - PLEURAL DISORDER [None]
  - COUGH [None]
  - NEUROTOXICITY [None]
  - HAEMOPTYSIS [None]
  - DYSARTHRIA [None]
